FAERS Safety Report 8463957-8 (Version None)
Quarter: 2012Q2

REPORT INFORMATION
  Report Type: 
  Country: None (occurrence: None)
  Receive Date: 20120625
  Receipt Date: 20120614
  Transmission Date: 20120825
  Serious: Yes (Hospitalization, Other)
  Sender: FDA-Public Use
  Company Number: US-VERTEX PHARMACEUTICALS INC.-AE-2012-009021

PATIENT
  Sex: Female

DRUGS (3)
  1. INCIVEK [Suspect]
     Indication: HEPATITIS C
     Route: 048
     Dates: start: 20120211, end: 20120514
  2. RIBAVIRIN [Concomitant]
     Indication: HEPATITIS C
     Dates: start: 20120211
  3. PEGASYS [Concomitant]
     Indication: HEPATITIS C
     Dates: start: 20120211

REACTIONS (4)
  - HAEMOGLOBIN DECREASED [None]
  - HEAD INJURY [None]
  - SYNCOPE [None]
  - HAEMATOCRIT DECREASED [None]
